FAERS Safety Report 23499297 (Version 1)
Quarter: 2024Q1

REPORT INFORMATION
  Report Type: Spontaneous
  Country: US (occurrence: US)
  Receive Date: 20240208
  Receipt Date: 20240208
  Transmission Date: 20240410
  Serious: No
  Sender: FDA-Public Use
  Company Number: US-TEVA-VS-3142061

PATIENT
  Sex: Male

DRUGS (1)
  1. LEVALBUTEROL [Suspect]
     Active Substance: LEVALBUTEROL
     Indication: Product used for unknown indication
     Dosage: LEVALBUTEROL 1.25/3 MG/ML
     Route: 065

REACTIONS (1)
  - Therapeutic product effect decreased [Unknown]
